FAERS Safety Report 8609791-7 (Version None)
Quarter: 2012Q3

REPORT INFORMATION
  Report Type: 
  Country: None (occurrence: None)
  Receive Date: 20120821
  Receipt Date: 20120813
  Transmission Date: 20120928
  Serious: Yes (Other)
  Sender: FDA-Public Use
  Company Number: CHPA2012US018036

PATIENT
  Sex: Female

DRUGS (1)
  1. MAALOX ANTACID/ANTIGAS MAX QDTABS WILDB [Suspect]
     Indication: GASTROINTESTINAL DISORDER
     Dosage: 1-4 TABLETS, AS NEEDED
     Route: 048
     Dates: start: 20090101

REACTIONS (5)
  - LIVER DISORDER [None]
  - NEPHROLITHIASIS [None]
  - RENAL CYST [None]
  - ABDOMINAL PAIN UPPER [None]
  - OFF LABEL USE [None]
